FAERS Safety Report 5801388-7 (Version None)
Quarter: 2008Q3

REPORT INFORMATION
  Report Type: 
  Country: None (occurrence: None)
  Receive Date: 20080707
  Receipt Date: 20080625
  Transmission Date: 20090109
  Serious: No
  Sender: FDA-Public Use
  Company Number: GB-PFIZER INC-2008015982

PATIENT
  Age: 83 Year
  Sex: Female

DRUGS (15)
  1. ZYVOX [Suspect]
     Indication: WOUND INFECTION STAPHYLOCOCCAL
     Route: 048
     Dates: start: 20080124, end: 20080127
  2. ADCAL-D3 [Concomitant]
     Route: 048
  3. ALENDRONIC ACID [Concomitant]
     Route: 048
  4. AMITRIPTYLINE HCL [Concomitant]
     Route: 048
  5. ACETYLSALICYLIC ACID SRT [Concomitant]
     Route: 048
  6. BECLOMETHASONE DIPROPIONATE [Concomitant]
     Route: 055
  7. CODEINE SUL TAB [Concomitant]
     Route: 048
  8. DILTIAZEM HCL [Concomitant]
     Route: 048
  9. FLUOXETINE [Concomitant]
     Route: 048
  10. GLICLAZIDE [Concomitant]
     Route: 048
  11. MOVICOL [Concomitant]
     Route: 048
  12. MUPIROCIN [Concomitant]
     Route: 061
  13. PREDNISOLONE [Concomitant]
     Route: 048
  14. ALBUTEROL [Concomitant]
     Route: 055
  15. SIMVASTATIN [Concomitant]
     Route: 048
     Dates: start: 20080118, end: 20080118

REACTIONS (1)
  - NO ADVERSE EVENT [None]
